FAERS Safety Report 8782865 (Version 1)
Quarter: 2012Q4

REPORT INFORMATION
  Report Type: 
  Country: BR (occurrence: BR)
  Receive Date: 20120913
  Receipt Date: 20120913
  Transmission Date: 20130627
  Serious: Yes (Other)
  Sender: FDA-Public Use
  Company Number: PHHY2012BR079051

PATIENT
  Age: 66 Year
  Sex: Male

DRUGS (8)
  1. ATENOLOL [Suspect]
     Route: 048
  2. ENALAPRIL MALEATE [Suspect]
     Route: 048
  3. SIMVASTATIN [Suspect]
     Route: 048
  4. SERTRALINE HYDROCHLORIDE [Suspect]
     Route: 048
  5. ACETYLSALICYLIC ACID [Concomitant]
  6. ONBRIZE [Concomitant]
     Dosage: 300 ug, QD
  7. SPIRIVA [Concomitant]
     Dosage: 5 ug, QD
  8. OXYGEN THERAPY [Concomitant]

REACTIONS (4)
  - Emphysema [Recovered/Resolved]
  - Cyanosis [Recovering/Resolving]
  - Hypoxia [Recovering/Resolving]
  - Dyspnoea [Recovering/Resolving]
